FAERS Safety Report 12930477 (Version 7)
Quarter: 2017Q2

REPORT INFORMATION
  Report Type: Report from Study
  Country: CN (occurrence: CN)
  Receive Date: 20161110
  Receipt Date: 20170424
  Transmission Date: 20170830
  Serious: Yes (Hospitalization, Other)
  Sender: FDA-Public Use
  Company Number: PHHY2016CN131348

PATIENT
  Age: 58 Year
  Sex: Male
  Weight: 64.4 kg

DRUGS (60)
  1. AMBROXOL HYDROCHLORIDE [Concomitant]
     Active Substance: AMBROXOL HYDROCHLORIDE
     Indication: COUGH
     Dosage: 15 MG, BID SPRAYING
     Route: 065
     Dates: start: 20160824, end: 20160902
  2. CASPOFUNGIN ACETATE. [Concomitant]
     Active Substance: CASPOFUNGIN ACETATE
     Indication: ANTI-INFECTIVE THERAPY
     Dosage: 50 MG, QD
     Route: 042
     Dates: start: 20160821, end: 20160829
  3. METOCLOPRAMIDE. [Concomitant]
     Active Substance: METOCLOPRAMIDE
     Indication: PROPHYLAXIS
     Dosage: 10 MG, PRN
     Route: 030
     Dates: start: 20160826, end: 20160826
  4. AMLODIPINE BESYLATE. [Concomitant]
     Active Substance: AMLODIPINE BESYLATE
     Indication: BLOOD PRESSURE INCREASED
     Dosage: 5 MG, QD
     Route: 048
     Dates: start: 20160828
  5. MANNITOL. [Concomitant]
     Active Substance: MANNITOL
     Indication: PROPHYLAXIS
     Dosage: 125 ML, PRN
     Route: 042
     Dates: start: 20160821, end: 20160821
  6. ESOMEPRAZOLE MAGNESIUM. [Concomitant]
     Active Substance: ESOMEPRAZOLE MAGNESIUM
     Indication: PROPHYLAXIS
     Dosage: 20 MG, QD
     Route: 048
     Dates: start: 20160902, end: 20160907
  7. MYFORTIC [Suspect]
     Active Substance: MYCOPHENOLATE SODIUM
     Indication: PROPHYLAXIS AGAINST TRANSPLANT REJECTION
     Dosage: 540 MG, BID
     Route: 048
     Dates: start: 20160830
  8. PREDNISONE. [Suspect]
     Active Substance: PREDNISONE
     Indication: IMMUNOSUPPRESSANT DRUG THERAPY
     Dosage: 10 MG, QD
     Route: 065
     Dates: start: 20160907
  9. METHYLPREDNISOLONE. [Suspect]
     Active Substance: METHYLPREDNISOLONE
     Indication: IMMUNOSUPPRESSANT DRUG THERAPY
     Dosage: 740 MG, QD
     Route: 065
     Dates: start: 20160822, end: 20160822
  10. METHYLPREDNISOLONE. [Suspect]
     Active Substance: METHYLPREDNISOLONE
     Dosage: 40 MG, QD
     Route: 065
     Dates: start: 20160826, end: 20160829
  11. ALPRAZOLAM. [Concomitant]
     Active Substance: ALPRAZOLAM
     Indication: SEDATION
     Dosage: 0.4 MG, PRN
     Route: 048
     Dates: start: 20160823, end: 20160907
  12. ALPROSTADIL. [Concomitant]
     Active Substance: ALPROSTADIL
     Indication: PRODUCT USED FOR UNKNOWN INDICATION
     Dosage: 20 UG, QD
     Route: 042
     Dates: start: 20160823, end: 20160902
  13. SODIUM CHLORIDE COMPOUND INJECTION [Concomitant]
     Dosage: 500 ML, PRN
     Route: 042
     Dates: start: 20160823, end: 20160823
  14. DILTIAZEM HYDROCHLORIDE. [Concomitant]
     Active Substance: DILTIAZEM HYDROCHLORIDE
     Indication: PRODUCT USED FOR UNKNOWN INDICATION
     Dosage: 30 MG, BID
     Route: 048
     Dates: start: 20160823, end: 20160830
  15. INSULIN [Concomitant]
     Active Substance: INSULIN NOS
     Indication: ELECTROLYTE IMBALANCE
     Dosage: 30 IU, PRN
     Route: 042
     Dates: start: 20160822, end: 20160822
  16. AMLODIPINE [Concomitant]
     Active Substance: AMLODIPINE BESYLATE
     Indication: RENAL HYPERTENSION
     Dosage: 5 MG, QD
     Route: 048
     Dates: start: 20160828
  17. AMIKACIN [Concomitant]
     Active Substance: AMIKACIN
     Indication: PROPHYLAXIS
     Dosage: 400 MG, PRN
     Route: 042
     Dates: start: 20160821, end: 20160821
  18. SODIUM CHLORIDE COMPOUND INJECTION [Concomitant]
     Indication: ELECTROLYTE IMBALANCE
     Dosage: 500 MG, PRN
     Route: 042
     Dates: start: 20160821, end: 20160821
  19. DEXAMETHASONE SODIUM PHOSPHATE. [Concomitant]
     Active Substance: DEXAMETHASONE SODIUM PHOSPHATE
     Indication: PROPHYLAXIS
     Dosage: 10 MG, PRN
     Route: 042
     Dates: start: 20160821, end: 20160821
  20. HEPATITIS B IMMUNE GLOBULIN [Concomitant]
     Active Substance: HUMAN HEPATITIS B VIRUS IMMUNE GLOBULIN
     Indication: PROPHYLAXIS
     Dosage: 400 IU, PRN
     Route: 030
     Dates: start: 20160328, end: 20160328
  21. TEICOPLANIN [Concomitant]
     Active Substance: TEICOPLANIN
     Indication: ANTI-INFECTIVE THERAPY
     Dosage: 200 MG, QD
     Route: 042
     Dates: start: 20160821, end: 20160829
  22. MYFORTIC [Suspect]
     Active Substance: MYCOPHENOLATE SODIUM
     Indication: IMMUNOSUPPRESSANT DRUG THERAPY
  23. TACROLIMUS. [Suspect]
     Active Substance: TACROLIMUS
     Dosage: 3 MG, QD
     Route: 065
     Dates: start: 20160907
  24. METHYLPREDNISOLONE. [Suspect]
     Active Substance: METHYLPREDNISOLONE
     Dosage: 20 MG, QD
     Route: 065
     Dates: start: 20160830, end: 20160907
  25. POTASSIUM CHLORIDE. [Concomitant]
     Active Substance: POTASSIUM CHLORIDE
     Dosage: 15 ML, PRN
     Route: 042
     Dates: start: 20160829, end: 20160829
  26. SODIUM CHLORIDE COMPOUND INJECTION [Concomitant]
     Dosage: 1000 ML, BID
     Route: 042
     Dates: start: 20160824, end: 20160824
  27. CALCIUM GLUCONATE. [Concomitant]
     Active Substance: CALCIUM GLUCONATE
     Indication: PROPHYLAXIS
     Dosage: 3000 MG, QD
     Route: 042
     Dates: start: 20160823, end: 20160824
  28. FUROSEMIDE. [Concomitant]
     Active Substance: FUROSEMIDE
     Indication: POLYURIA
     Dosage: 80 MG, PRN
     Route: 042
     Dates: start: 20160821, end: 20160821
  29. TERAZOSIN HYDROCHLORIDE. [Concomitant]
     Active Substance: TERAZOSIN HYDROCHLORIDE
     Indication: BLOOD PRESSURE INCREASED
     Dosage: 2 MG, QD
     Route: 048
     Dates: start: 20170210
  30. INSULIN [Concomitant]
     Active Substance: INSULIN NOS
     Dosage: 6 IU, PRN
     Route: 042
     Dates: start: 20160904, end: 20160904
  31. HEPARIN SODIUM. [Concomitant]
     Active Substance: HEPARIN SODIUM
     Indication: PROPHYLAXIS
     Dosage: 12500 IU, UNK
     Route: 042
     Dates: start: 20160824, end: 20160904
  32. MYFORTIC [Suspect]
     Active Substance: MYCOPHENOLATE SODIUM
     Indication: RENAL TRANSPLANT
     Dosage: 1440 MG, QD
     Route: 065
     Dates: start: 20160821, end: 20160829
  33. SIMULECT [Suspect]
     Active Substance: BASILIXIMAB
     Indication: PROPHYLAXIS AGAINST TRANSPLANT REJECTION
     Dosage: 20 MG, QD
     Route: 042
     Dates: start: 20160826, end: 20160826
  34. TACROLIMUS. [Suspect]
     Active Substance: TACROLIMUS
     Dosage: 2 MG, QD
     Route: 065
     Dates: start: 20160827, end: 20160829
  35. TACROLIMUS. [Suspect]
     Active Substance: TACROLIMUS
     Dosage: 1 MG, QD
     Route: 065
     Dates: start: 20160830, end: 20160901
  36. AMBROXOL HYDROCHLORIDE [Concomitant]
     Active Substance: AMBROXOL HYDROCHLORIDE
     Indication: PRODUCTIVE COUGH
  37. TALCID [Concomitant]
     Active Substance: HYDROTALCITE
     Indication: PROPHYLAXIS
     Dosage: 1000 MG, QD
     Route: 048
     Dates: start: 20160823
  38. FUROSEMIDE. [Concomitant]
     Active Substance: FUROSEMIDE
     Dosage: 40 MG, BID
     Route: 042
     Dates: start: 20160824, end: 20160825
  39. CALCIUM CARBONATE. [Concomitant]
     Active Substance: CALCIUM CARBONATE
     Indication: PROPHYLAXIS
     Dosage: 600 MG, TID
     Route: 048
     Dates: start: 20160826, end: 20160902
  40. VITAMIN B6 [Concomitant]
     Active Substance: PYRIDOXINE HYDROCHLORIDE
     Indication: PRODUCT USED FOR UNKNOWN INDICATION
     Dosage: 60 MG, TID
     Route: 048
     Dates: start: 20160903
  41. TACROLIMUS. [Suspect]
     Active Substance: TACROLIMUS
     Dosage: 4 MG, QD
     Route: 065
     Dates: start: 20160826, end: 20160826
  42. METHYLPREDNISOLONE. [Suspect]
     Active Substance: METHYLPREDNISOLONE
     Dosage: 320 MG, QD
     Route: 065
     Dates: start: 20160825, end: 20160825
  43. AMLODIPINE [Concomitant]
     Active Substance: AMLODIPINE BESYLATE
     Indication: BLOOD PRESSURE INCREASED
     Dosage: 5 MG, QD
     Route: 048
     Dates: start: 20160907
  44. POTASSIUM CHLORIDE. [Concomitant]
     Active Substance: POTASSIUM CHLORIDE
     Dosage: 1000 MG, TID
     Route: 048
     Dates: start: 20160829, end: 20160902
  45. ESOMEPRAZOLE MAGNESIUM. [Concomitant]
     Active Substance: ESOMEPRAZOLE MAGNESIUM
     Indication: ANTACID THERAPY
     Dosage: 40 MG, QD
     Route: 042
     Dates: start: 20160823, end: 20160902
  46. TORASEMIDE [Concomitant]
     Active Substance: TORSEMIDE
     Indication: POLYURIA
     Dosage: 20 MG, BID
     Route: 042
     Dates: start: 20160825, end: 20160829
  47. SODIUM BICARBONATE. [Concomitant]
     Active Substance: SODIUM BICARBONATE
     Indication: URINE ALKALINISATION THERAPY
     Dosage: 1000 MG, BID
     Route: 048
     Dates: start: 20160907
  48. SIMULECT [Suspect]
     Active Substance: BASILIXIMAB
     Indication: RENAL TRANSPLANT
     Dosage: 20 MG, QD
     Route: 042
     Dates: start: 20160822, end: 20160822
  49. TACROLIMUS. [Suspect]
     Active Substance: TACROLIMUS
     Indication: IMMUNOSUPPRESSANT DRUG THERAPY
     Dosage: 7 MG, QD
     Route: 065
     Dates: start: 20160822, end: 20160825
  50. TACROLIMUS. [Suspect]
     Active Substance: TACROLIMUS
     Dosage: 3 MG, QD
     Route: 065
     Dates: start: 20160902, end: 20160902
  51. TACROLIMUS. [Suspect]
     Active Substance: TACROLIMUS
     Dosage: 2 MG, QD
     Route: 065
     Dates: start: 20160903, end: 20160906
  52. METHYLPREDNISOLONE. [Suspect]
     Active Substance: METHYLPREDNISOLONE
     Dosage: 660 MG, QD
     Route: 065
     Dates: start: 20160823, end: 20160824
  53. POTASSIUM CHLORIDE. [Concomitant]
     Active Substance: POTASSIUM CHLORIDE
     Indication: ELECTROLYTE IMBALANCE
     Dosage: 12 ML, BID
     Route: 042
     Dates: start: 20160822, end: 20160822
  54. POTASSIUM CHLORIDE. [Concomitant]
     Active Substance: POTASSIUM CHLORIDE
     Indication: PRODUCT USED FOR UNKNOWN INDICATION
     Dosage: 500 MG, TID
     Route: 048
     Dates: start: 20160826, end: 20160829
  55. SODIUM BICARBONATE. [Concomitant]
     Active Substance: SODIUM BICARBONATE
     Indication: ELECTROLYTE IMBALANCE
     Dosage: 250 ML, TID
     Route: 042
     Dates: start: 20160822, end: 20160822
  56. MAGNESIUM SULFATE. [Concomitant]
     Active Substance: MAGNESIUM SULFATE
     Indication: ELECTROLYTE IMBALANCE
     Dosage: 8 ML, PRN
     Route: 042
     Dates: start: 20160822, end: 20160822
  57. ACARBOSE. [Concomitant]
     Active Substance: ACARBOSE
     Indication: BLOOD GLUCOSE INCREASED
     Dosage: 100 MG, BID
     Route: 048
     Dates: start: 20160907
  58. DIAZEPAM. [Concomitant]
     Active Substance: DIAZEPAM
     Indication: SEDATION
     Dosage: 5 MG, PRN
     Route: 042
     Dates: start: 20160821, end: 20160821
  59. FLUCONAZOLE. [Concomitant]
     Active Substance: FLUCONAZOLE
     Indication: ANTI-INFECTIVE THERAPY
     Dosage: 200 MG, QD
     Route: 048
     Dates: start: 20160907
  60. FUROSEMIDE. [Concomitant]
     Active Substance: FUROSEMIDE
     Dosage: 40 MG, BID
     Route: 042
     Dates: start: 20160823, end: 20160824

REACTIONS (7)
  - Toxicity to various agents [Recovered/Resolved]
  - Protein urine present [Unknown]
  - Hypokalaemia [Recovered/Resolved]
  - Haemoglobin decreased [Unknown]
  - Incision site pain [Recovering/Resolving]
  - Candida infection [Recovered/Resolved]
  - Blood creatinine increased [Recovered/Resolved]

NARRATIVE: CASE EVENT DATE: 20160823
